FAERS Safety Report 11635459 (Version 5)
Quarter: 2016Q1

REPORT INFORMATION
  Report Type: Spontaneous
  Country: BE (occurrence: BE)
  Receive Date: 20151016
  Receipt Date: 20160323
  Transmission Date: 20160525
  Serious: Yes (Hospitalization)
  Sender: FDA-Public Use
  Company Number: BE-HOSPIRA-3037250

PATIENT
  Age: 77 Year
  Sex: Male

DRUGS (22)
  1. IRINOTECAN HYDROCHLORIDE. [Suspect]
     Active Substance: IRINOTECAN HYDROCHLORIDE
     Indication: COLORECTAL CANCER
     Dosage: DAY 1 OF EACH 14-DAY CYCLE
     Route: 042
     Dates: start: 20150805, end: 20150907
  2. IMODIUM [Concomitant]
     Active Substance: LOPERAMIDE HYDROCHLORIDE
     Indication: PROPHYLAXIS AGAINST DIARRHOEA
     Route: 048
     Dates: start: 20150803
  3. PYRIDOXINE [Concomitant]
     Active Substance: PYRIDOXINE
     Indication: PERIPHERAL SWELLING
     Route: 048
     Dates: start: 20150805
  4. FLUOROURACIL. [Suspect]
     Active Substance: FLUOROURACIL
     Indication: COLORECTAL CANCER
     Dosage: OVER 46 HOURS; DAY 1 OF EACH 14-DAY CYCLE
     Route: 042
     Dates: start: 20150805, end: 20150909
  5. PYRIDOXINE [Concomitant]
     Active Substance: PYRIDOXINE
     Indication: PROPHYLAXIS
     Route: 048
     Dates: start: 20150805
  6. NEULASTA [Concomitant]
     Active Substance: PEGFILGRASTIM
     Indication: NEUTROPENIA
     Dosage: ONCE, EVERY 2 WEEKS BEFORE CHEMOTHERAPY
     Route: 058
     Dates: start: 20150829, end: 20150829
  7. VELIPARIB [Suspect]
     Active Substance: VELIPARIB
     Indication: COLORECTAL CANCER
     Dosage: DAYS -2 THROUGH 5 OF EACH 14-DAY CYCLE
     Route: 048
     Dates: start: 20150803, end: 20150911
  8. PYRIDOXINE [Concomitant]
     Active Substance: PYRIDOXINE
     Indication: PERIPHERAL SWELLING
     Route: 048
     Dates: start: 20150805
  9. PANTOMED                           /00178901/ [Concomitant]
     Indication: HIATUS HERNIA
     Route: 048
     Dates: start: 20150708
  10. ATROPINE SULFATE. [Concomitant]
     Active Substance: ATROPINE SULFATE
     Indication: PROPHYLAXIS
     Dosage: ONCE, EVERY 2 WEEKS BEFORE CHEMOTHERAPY
     Route: 058
     Dates: start: 20150805, end: 20150907
  11. ATROPINE SULFATE. [Concomitant]
     Active Substance: ATROPINE SULFATE
     Indication: DRUG HYPERSENSITIVITY
     Dosage: ONCE, EVERY 2 WEEKS BEFORE CHEMOTHERAPY
     Route: 058
     Dates: start: 20150805, end: 20150907
  12. NEULASTA [Concomitant]
     Active Substance: PEGFILGRASTIM
     Indication: PROPHYLAXIS
     Dosage: ONCE, EVERY 2 WEEKS BEFORE CHEMOTHERAPY
     Route: 058
     Dates: start: 20150829, end: 20150829
  13. MOUTH WASH [Concomitant]
     Indication: STOMATITIS
     Route: 002
     Dates: start: 20150805
  14. LEUCOVORIN                         /00566701/ [Concomitant]
     Active Substance: LEUCOVORIN
     Indication: COLORECTAL CANCER
     Dosage: DAY 1 OF EACH 14-DAY CYCLE
     Route: 042
     Dates: start: 20150805, end: 20150907
  15. PYRIDOXINE [Concomitant]
     Active Substance: PYRIDOXINE
     Indication: RASH
     Route: 048
     Dates: start: 20150805
  16. PYRIDOXINE [Concomitant]
     Active Substance: PYRIDOXINE
     Indication: RASH
     Route: 048
     Dates: start: 20150805
  17. FLUOROURACIL. [Suspect]
     Active Substance: FLUOROURACIL
     Indication: COLORECTAL CANCER
     Dosage: OVER 46 HOURS; DAY 1 OF EACH 14-DAY CYCLE
     Route: 042
     Dates: start: 20150805, end: 20150909
  18. SOLU-MEDROL [Concomitant]
     Active Substance: METHYLPREDNISOLONE SODIUM SUCCINATE
     Indication: PROPHYLAXIS
     Route: 042
     Dates: start: 20150805, end: 20150907
  19. BEVACIZUMAB [Suspect]
     Active Substance: BEVACIZUMAB
     Indication: COLORECTAL CANCER
     Dosage: DAY 1 OF EACH 14-DAY CYCLE
     Route: 042
     Dates: start: 20150805, end: 20150907
  20. SOLU-MEDROL [Concomitant]
     Active Substance: METHYLPREDNISOLONE SODIUM SUCCINATE
     Indication: DRUG HYPERSENSITIVITY
     Route: 042
     Dates: start: 20150805, end: 20150907
  21. MOUTH WASH [Concomitant]
     Indication: PROPHYLAXIS
     Route: 002
     Dates: start: 20150805
  22. ALOXI [Concomitant]
     Active Substance: PALONOSETRON HYDROCHLORIDE
     Indication: PROPHYLAXIS OF NAUSEA AND VOMITING
     Dosage: ONCE, EVERY 2 WEEKS BEFORE CHEMOTHERAPY
     Route: 042
     Dates: start: 20150805, end: 20150907

REACTIONS (11)
  - Enteritis [Recovered/Resolved]
  - Dehydration [Unknown]
  - Acute kidney injury [Unknown]
  - Small intestinal perforation [Unknown]
  - Septic shock [Unknown]
  - Metabolic acidosis [Unknown]
  - Hypovolaemia [Unknown]
  - Peritonitis [Unknown]
  - Clostridium difficile sepsis [Unknown]
  - Pleural effusion [Unknown]
  - Hyperlactacidaemia [Unknown]

NARRATIVE: CASE EVENT DATE: 20150916
